FAERS Safety Report 25938922 (Version 1)
Quarter: 2025Q4

REPORT INFORMATION
  Report Type: Report from Study
  Country: US (occurrence: US)
  Receive Date: 20251019
  Receipt Date: 20251019
  Transmission Date: 20260117
  Serious: Yes (Hospitalization, Other)
  Sender: ABBVIE
  Company Number: US-ABBVIE-6377301

PATIENT
  Age: 83 Year
  Sex: Female

DRUGS (1)
  1. IMBRUVICA [Suspect]
     Active Substance: IBRUTINIB
     Indication: Non-Hodgkin^s lymphoma
     Route: 048
     Dates: start: 202504

REACTIONS (10)
  - Fall [Unknown]
  - Memory impairment [Unknown]
  - Contusion [Unknown]
  - Blood sodium decreased [Unknown]
  - Joint effusion [Unknown]
  - Eye disorder [Unknown]
  - Fatigue [Unknown]
  - Polydipsia [Unknown]
  - Malaise [Unknown]
  - Cough [Unknown]

NARRATIVE: CASE EVENT DATE: 20250101
